FAERS Safety Report 8053837-4 (Version None)
Quarter: 2012Q1

REPORT INFORMATION
  Report Type: 
  Country: None (occurrence: None)
  Receive Date: 20120118
  Receipt Date: 20120112
  Transmission Date: 20120608
  Serious: Yes (Hospitalization)
  Sender: FDA-Public Use
  Company Number: US-PFIZER INC-2012009885

PATIENT
  Sex: Female
  Weight: 74.376 kg

DRUGS (2)
  1. CARVEDILOL [Concomitant]
     Dosage: UNK, 2X/DAY
     Route: 048
  2. REVATIO [Suspect]
     Indication: LUNG DISORDER
     Dosage: 20 MG, 2X/DAY
     Route: 048
     Dates: start: 20080101

REACTIONS (1)
  - MYOCARDIAL INFARCTION [None]
